FAERS Safety Report 8620180 (Version 3)
Quarter: 2012Q4

REPORT INFORMATION
  Report Type: 
  Country: US (occurrence: US)
  Receive Date: 20120618
  Receipt Date: 20121214
  Transmission Date: 20130627
  Serious: No
  Sender: FDA-Public Use
  Company Number: US-B.I. PHARMACEUTICALS,INC./RIDGEFIELD-2012-BP-13458BP

PATIENT
  Age: 80 None
  Sex: Female

DRUGS (11)
  1. PRADAXA [Suspect]
     Indication: ATRIAL FIBRILLATION
     Dosage: 300 mg
     Route: 048
     Dates: start: 201204
  2. TOPROL [Concomitant]
  3. LANOXIN [Concomitant]
     Indication: CARDIAC DISORDER
  4. FOLIC ACID [Concomitant]
     Indication: SUPPLEMENTATION THERAPY
  5. TRICOR [Concomitant]
  6. VYTORIN [Concomitant]
  7. EXFORGE [Concomitant]
     Indication: HYPERTENSION
  8. LEVOXYL [Concomitant]
  9. LIBRIUM [Concomitant]
  10. METFORMIN [Concomitant]
     Indication: TYPE 2 DIABETES MELLITUS
  11. JANUVIA [Concomitant]
     Indication: TYPE 2 DIABETES MELLITUS

REACTIONS (8)
  - Dyspepsia [Not Recovered/Not Resolved]
  - Constipation [Not Recovered/Not Resolved]
  - Abdominal pain [Not Recovered/Not Resolved]
  - Headache [Not Recovered/Not Resolved]
  - Dyspepsia [Not Recovered/Not Resolved]
  - Abdominal pain upper [Not Recovered/Not Resolved]
  - Epistaxis [Recovered/Resolved]
  - Toothache [Not Recovered/Not Resolved]
